FAERS Safety Report 10373957 (Version 1)
Quarter: 2014Q1

REPORT INFORMATION
  Report Type: Spontaneous
  Country: US (occurrence: None)
  Receive Date: 20140306
  Receipt Date: 20140306
  Transmission Date: 20141002
  Serious: Yes (Hospitalization, Other)
  Sender: FDA-Public Use
  Company Number: 163-21880-13014711

PATIENT
  Age: 66 Year
  Sex: Male

DRUGS (13)
  1. REVLIMID (LENALIDOMIDE) (10 MILLIGRAM, CAPSULES) [Suspect]
     Indication: PLASMA CELL MYELOMA
     Dosage: 10 MG, 21 IN 28 D, PO
     Route: 048
     Dates: start: 20120416, end: 20120806
  2. ALPRAZOLAM [Concomitant]
  3. FENTANYL [Concomitant]
  4. KLOR-CON M20 (POTASSIUM CHLORIDE) [Concomitant]
  5. LEVOTHYROXINE SODIUM [Concomitant]
  6. MAGNESIUM OXIDE [Concomitant]
  7. METOPROLOL TARTRATE [Concomitant]
  8. PANTOPRAZOLE SODIUM [Concomitant]
  9. ASA (ACETYLSALICYLIC ACID) [Concomitant]
  10. AMLODIPINE [Concomitant]
  11. SYNTHROID (LEVOTHYROXINE SODIUM) [Concomitant]
  12. ZOCOR (SIMVASTATIN) [Concomitant]
  13. AVAPRO (IRBESARTAN) [Concomitant]

REACTIONS (1)
  - Rash [None]
